FAERS Safety Report 6825194-X (Version None)
Quarter: 2010Q3

REPORT INFORMATION
  Report Type: 
  Country: None (occurrence: None)
  Receive Date: 20100708
  Receipt Date: 20061128
  Transmission Date: 20110219
  Serious: No
  Sender: FDA-Public Use
  Company Number: US-PFIZER INC-2006148901

PATIENT
  Sex: Female
  Weight: 77.11 kg

DRUGS (3)
  1. CHANTIX [Suspect]
     Indication: SMOKING CESSATION THERAPY
     Route: 048
     Dates: start: 20061121
  2. HORMONAL CONTRACEPTIVES FOR SYSTEMIC USE [Concomitant]
     Route: 048
  3. LORAZEPAM [Concomitant]
     Route: 048

REACTIONS (2)
  - ABNORMAL DREAMS [None]
  - NAUSEA [None]
